FAERS Safety Report 6371047-3 (Version None)
Quarter: 2009Q3

REPORT INFORMATION
  Report Type: 
  Country: None (occurrence: None)
  Receive Date: 20090921
  Receipt Date: 20090921
  Transmission Date: 20100115
  Serious: Yes (Hospitalization)
  Sender: FDA-Public Use
  Company Number: None

PATIENT
  Age: 23 Year
  Sex: Female
  Weight: 140 kg

DRUGS (1)
  1. RITUXAN [Suspect]
     Indication: THROMBOTIC THROMBOCYTOPENIC PURPURA
     Dosage: INTRAVENOUS;900.0
     Route: 042
     Dates: start: 20090430, end: 20090430

REACTIONS (5)
  - DYSPNOEA [None]
  - FEELING HOT [None]
  - FLUSHING [None]
  - LIP SWELLING [None]
  - RASH [None]
